FAERS Safety Report 5100632-1 (Version None)
Quarter: 2006Q3

REPORT INFORMATION
  Report Type: 
  Country: None (occurrence: None)
  Receive Date: 20060906
  Receipt Date: 20060825
  Transmission Date: 20061208
  Serious: Yes (Death)
  Sender: FDA-Public Use
  Company Number: 2006BH013044

PATIENT
  Age: 50 Year
  Sex: Female
  Weight: 58.9676 kg

DRUGS (5)
  1. BREVIBLOC [Suspect]
     Indication: POST PROCEDURAL COMPLICATION
     Dosage: 20 MG; ONCE; IV
     Route: 042
     Dates: start: 20060822, end: 20060822
  2. BREVIBLOC [Suspect]
     Indication: TACHYCARDIA
     Dosage: 20 MG; ONCE; IV
     Route: 042
     Dates: start: 20060822, end: 20060822
  3. MORPHINE [Concomitant]
  4. FENTANYL [Concomitant]
  5. ISOFLURANE [Concomitant]

REACTIONS (4)
  - ARTERIOSPASM CORONARY [None]
  - BRADYCARDIA [None]
  - HYPOTENSION [None]
  - VENTRICULAR EXTRASYSTOLES [None]
